FAERS Safety Report 23648604 (Version 10)
Quarter: 2024Q4

REPORT INFORMATION
  Report Type: Spontaneous
  Country: ES (occurrence: ES)
  Receive Date: 20240319
  Receipt Date: 20241227
  Transmission Date: 20250114
  Serious: Yes (Death, Hospitalization, Other)
  Sender: UCB
  Company Number: ES-UCBSA-2024013441

PATIENT
  Age: 0 Year
  Sex: Male
  Weight: 3.9 kg

DRUGS (40)
  1. VIMPAT [Suspect]
     Active Substance: LACOSAMIDE
     Indication: Generalised tonic-clonic seizure
     Dosage: 10 MILLIGRAM/KILOGRAM, 2X/DAY (BID) (10 MG/KG/12HR IV)
     Route: 042
     Dates: start: 20220419, end: 20220615
  2. VIMPAT [Suspect]
     Active Substance: LACOSAMIDE
     Indication: Off label use
  3. VIMPAT [Suspect]
     Active Substance: LACOSAMIDE
     Indication: Status epilepticus
  4. VIMPAT [Suspect]
     Active Substance: LACOSAMIDE
     Indication: Epilepsy
  5. VIMPAT [Suspect]
     Active Substance: LACOSAMIDE
     Indication: Gene mutation
  6. VIMPAT [Suspect]
     Active Substance: LACOSAMIDE
     Indication: Generalised tonic-clonic seizure
  7. VIMPAT [Suspect]
     Active Substance: LACOSAMIDE
     Indication: Epilepsy of infancy with migrating focal seizures
  8. PERAMPANEL [Suspect]
     Active Substance: PERAMPANEL
     Indication: Generalised tonic-clonic seizure
     Dosage: 1 MILLIGRAM, ONCE DAILY (QD), PERCUTANEOUS ENDOSCOPIC GASTROSTOMY
     Dates: start: 20220419, end: 20220615
  9. PERAMPANEL [Suspect]
     Active Substance: PERAMPANEL
     Indication: Status epilepticus
  10. PERAMPANEL [Suspect]
     Active Substance: PERAMPANEL
     Indication: Epilepsy of infancy with migrating focal seizures
  11. PERAMPANEL [Suspect]
     Active Substance: PERAMPANEL
     Indication: Epilepsy
  12. PERAMPANEL [Suspect]
     Active Substance: PERAMPANEL
     Indication: Gene mutation
  13. PERAMPANEL [Suspect]
     Active Substance: PERAMPANEL
     Indication: Generalised tonic-clonic seizure
  14. PHENYTOIN [Suspect]
     Active Substance: PHENYTOIN
     Indication: Generalised tonic-clonic seizure
     Dosage: 15 MILLIGRAM EVERY 8 HOURS
     Route: 042
     Dates: start: 20220419, end: 20220615
  15. PHENYTOIN [Suspect]
     Active Substance: PHENYTOIN
     Indication: Epilepsy
  16. PHENYTOIN [Suspect]
     Active Substance: PHENYTOIN
     Indication: Gene mutation
  17. PHENYTOIN [Suspect]
     Active Substance: PHENYTOIN
     Indication: Epilepsy of infancy with migrating focal seizures
  18. PHENYTOIN [Suspect]
     Active Substance: PHENYTOIN
     Indication: Generalised tonic-clonic seizure
  19. PHENYTOIN [Suspect]
     Active Substance: PHENYTOIN
     Indication: Status epilepticus
  20. MIDAZOLAM [Suspect]
     Active Substance: MIDAZOLAM
     Indication: Generalised tonic-clonic seizure
     Dosage: 0.5 MILLIGRAM/KILOGRAM
  21. MIDAZOLAM [Suspect]
     Active Substance: MIDAZOLAM
     Indication: Focal dyscognitive seizures
     Dosage: 0.6 MILLIGRAM EVERY 1 HOUR (PERFUSION)
     Route: 042
     Dates: start: 20220419, end: 20220429
  22. MIDAZOLAM [Suspect]
     Active Substance: MIDAZOLAM
     Indication: Epilepsy of infancy with migrating focal seizures
  23. MIDAZOLAM [Suspect]
     Active Substance: MIDAZOLAM
     Indication: Epilepsy
  24. MIDAZOLAM [Suspect]
     Active Substance: MIDAZOLAM
     Indication: Gene mutation
  25. MIDAZOLAM [Suspect]
     Active Substance: MIDAZOLAM
     Indication: Generalised tonic-clonic seizure
  26. MIDAZOLAM [Suspect]
     Active Substance: MIDAZOLAM
     Indication: Status epilepticus
  27. KETAMINE [Suspect]
     Active Substance: KETAMINE
     Indication: Generalised tonic-clonic seizure
     Dosage: 5.8 MILLIGRAM EVERY 1 HOUR (PERFUSION)
     Route: 042
     Dates: start: 20220419, end: 20220429
  28. KETAMINE [Suspect]
     Active Substance: KETAMINE
     Indication: Status epilepticus
     Dosage: 2 MILLIGRAM/KILOGRAM
     Route: 042
  29. KETAMINE [Suspect]
     Active Substance: KETAMINE
     Indication: Epilepsy
  30. KETAMINE [Suspect]
     Active Substance: KETAMINE
     Indication: Gene mutation
  31. KETAMINE [Suspect]
     Active Substance: KETAMINE
     Indication: Epilepsy of infancy with migrating focal seizures
  32. KETAMINE [Suspect]
     Active Substance: KETAMINE
     Indication: Generalised tonic-clonic seizure
  33. THIOPENTAL [Concomitant]
     Active Substance: THIOPENTAL
     Indication: Generalised tonic-clonic seizure
     Dosage: 8 MILLIGRAM EVERY 1 HOUR (PERFUSION)
     Route: 042
     Dates: start: 20220429, end: 20220615
  34. THIOPENTAL [Concomitant]
     Active Substance: THIOPENTAL
     Indication: Generalised tonic-clonic seizure
     Dosage: 2 MILLIGRAM/KILOGRAM, QH
     Route: 042
  35. THIOPENTAL [Concomitant]
     Active Substance: THIOPENTAL
     Indication: Status epilepticus
  36. PROPOFOL [Concomitant]
     Active Substance: PROPOFOL
     Indication: Generalised tonic-clonic seizure
     Dosage: 8 MILLIGRAM EVERY 1 HOUR (PERFUSION)
     Route: 042
     Dates: start: 20220429, end: 20220615
  37. PROPOFOL [Concomitant]
     Active Substance: PROPOFOL
     Indication: Generalised tonic-clonic seizure
     Dosage: 2 MILLIGRAM/KILOGRAM, QH
     Route: 042
  38. PROPOFOL [Concomitant]
     Active Substance: PROPOFOL
     Indication: Status epilepticus
  39. ACYCLOVIR [Concomitant]
     Active Substance: ACYCLOVIR
     Indication: Encephalitis herpes
     Dosage: 10 MILLIGRAM/KILOGRAM, Q8H
     Route: 042
  40. ACYCLOVIR [Concomitant]
     Active Substance: ACYCLOVIR
     Indication: Coxsackie virus test positive

REACTIONS (7)
  - Ileus paralytic [Recovered/Resolved]
  - Multiple-drug resistance [Unknown]
  - Cerebral atrophy [Unknown]
  - Septic shock [Fatal]
  - Escherichia urinary tract infection [Fatal]
  - Drug ineffective [Unknown]
  - Off label use [Unknown]

NARRATIVE: CASE EVENT DATE: 20220419
